FAERS Safety Report 5853115-5 (Version None)
Quarter: 2008Q3

REPORT INFORMATION
  Report Type: 
  Country: None (occurrence: None)
  Receive Date: 20080818
  Receipt Date: 20080610
  Transmission Date: 20090109
  Serious: No
  Sender: FDA-Public Use
  Company Number: WAES 0806USA01901

PATIENT
  Age: 65 Year
  Sex: Female

DRUGS (2)
  1. JANUVIA [Suspect]
     Dosage: UNK UNK PO
     Route: 048
  2. NOVOLOG [Concomitant]

REACTIONS (1)
  - GENERALISED OEDEMA [None]
